FAERS Safety Report 5263382-7 (Version None)
Quarter: 2007Q1

REPORT INFORMATION
  Report Type: 
  Country: None (occurrence: None)
  Receive Date: 20070308
  Receipt Date: 20070227
  Transmission Date: 20070707
  Serious: Yes (Hospitalization)
  Sender: FDA-Public Use
  Company Number: 2007-155186-NL

PATIENT
  Age: 57 Year
  Sex: Female

DRUGS (5)
  1. DANAPAROID SODIUM [Suspect]
     Indication: THROMBOSIS
     Dosage: SEE IMAGE
     Route: 042
     Dates: start: 20061103, end: 20061109
  2. DANAPAROID SODIUM [Suspect]
     Indication: THROMBOSIS
     Dosage: SEE IMAGE
     Route: 042
     Dates: start: 20061103
  3. DANAPAROID SODIUM [Suspect]
     Indication: THROMBOSIS
     Dosage: SEE IMAGE
     Route: 042
     Dates: start: 20061103
  4. DANAPAROID SODIUM [Suspect]
     Indication: THROMBOSIS
     Dosage: SEE IMAGE
     Route: 042
     Dates: start: 20061103
  5. FLUINDIONE [Concomitant]

REACTIONS (4)
  - DRUG HYPERSENSITIVITY [None]
  - THROMBOCYTOPENIA [None]
  - THROMBOSIS [None]
  - VASCULAR PROCEDURE COMPLICATION [None]
